FAERS Safety Report 25189681 (Version 1)
Quarter: 2025Q2

REPORT INFORMATION
  Report Type: Spontaneous
  Country: US (occurrence: None)
  Receive Date: 20250410
  Receipt Date: 20250410
  Transmission Date: 20250716
  Serious: Yes (Life-Threatening)
  Sender: FDA-CTU
  Company Number: None

PATIENT
  Age: 33 Year
  Sex: Female

DRUGS (2)
  1. IRON DEXTRAN [Suspect]
     Active Substance: IRON DEXTRAN
     Indication: Iron deficiency anaemia
     Route: 040
     Dates: start: 20250224, end: 20250224
  2. VITAMINS [Concomitant]
     Active Substance: VITAMINS

REACTIONS (10)
  - Flushing [None]
  - Hypoxia [None]
  - Respiratory distress [None]
  - Drug monitoring procedure not performed [None]
  - Foetal heart rate abnormal [None]
  - Blood pressure decreased [None]
  - Anaphylactic reaction [None]
  - Infusion related reaction [None]
  - Exposure during pregnancy [None]
  - Maternal drugs affecting foetus [None]

NARRATIVE: CASE EVENT DATE: 20250224
